FAERS Safety Report 8728356 (Version 3)
Quarter: 2013Q1

REPORT INFORMATION
  Report Type: Spontaneous
  Country: US (occurrence: US)
  Receive Date: 20120817
  Receipt Date: 20130123
  Transmission Date: 20140127
  Serious: Yes (Hospitalization, Other)
  Sender: FDA-Public Use
  Company Number: US-BAYER-2012-082782

PATIENT
  Age: 43 Year
  Sex: Female
  Weight: 68.03 kg

DRUGS (6)
  1. YASMIN [Suspect]
     Indication: PREMENSTRUAL SYNDROME
     Dosage: UNK
     Dates: start: 200608, end: 2007
  2. PARLODEL [Concomitant]
     Dosage: 5 MG, Q HS
  3. CYMBALTA [Concomitant]
     Dosage: 60 MG, QD
  4. VALTREX [Concomitant]
     Dosage: 500 MG, UNK
  5. NEXIUM [Concomitant]
     Dosage: 40 MG, QD
  6. ALLEGRA [Concomitant]
     Dosage: 1 TABLET BID

REACTIONS (17)
  - Pulmonary embolism [None]
  - Gallbladder disorder [None]
  - Injury [None]
  - Cholecystitis chronic [None]
  - Pain [None]
  - General physical health deterioration [None]
  - Emotional distress [None]
  - Anxiety [None]
  - Pain [None]
  - Cardiac failure [None]
  - Hemiparesis [None]
  - Gastrooesophagitis [None]
  - Oesophagitis [None]
  - Pleurisy [None]
  - Pneumonia [None]
  - Weight increased [None]
  - Off label use [None]
